FAERS Safety Report 7689164-4 (Version None)
Quarter: 2011Q3

REPORT INFORMATION
  Report Type: 
  Country: None (occurrence: None)
  Receive Date: 20110817
  Receipt Date: 20110808
  Transmission Date: 20111222
  Serious: Yes (Disabling, Other)
  Sender: FDA-Public Use
  Company Number: US-PURDUE-USA-2008-0032540

PATIENT
  Age: 40 Year
  Sex: Female

DRUGS (2)
  1. OXYCODONE HCL [Suspect]
     Indication: DRUG ABUSE
  2. ALCOHOL [Suspect]
     Indication: ALCOHOL ABUSE

REACTIONS (5)
  - SUBSTANCE ABUSE [None]
  - LIMB INJURY [None]
  - IMPAIRED DRIVING ABILITY [None]
  - ROAD TRAFFIC ACCIDENT [None]
  - GAIT DISTURBANCE [None]
